FAERS Safety Report 24986293 (Version 1)
Quarter: 2025Q1

REPORT INFORMATION
  Report Type: Spontaneous
  Country: US (occurrence: US)
  Receive Date: 20250219
  Receipt Date: 20250219
  Transmission Date: 20250408
  Serious: Yes (Death, Life-Threatening, Other)
  Sender: ENDO
  Company Number: US-ENDO USA, INC.-2025-000353

PATIENT
  Age: 23 Year
  Sex: Female

DRUGS (4)
  1. IBUPROFEN [Suspect]
     Active Substance: IBUPROFEN
     Indication: Product used for unknown indication
     Route: 048
  2. ACETAMINOPHEN [Suspect]
     Active Substance: ACETAMINOPHEN
     Indication: Product used for unknown indication
     Route: 048
  3. ISOPROPANOLAMINE [Suspect]
     Active Substance: ISOPROPANOLAMINE
     Indication: Product used for unknown indication
     Route: 048
  4. BLACK PEPPER [Suspect]
     Active Substance: BLACK PEPPER
     Indication: Product used for unknown indication
     Route: 048

REACTIONS (15)
  - Completed suicide [Fatal]
  - Foetal death [Fatal]
  - Lethargy [Unknown]
  - Mental status changes [Unknown]
  - Seizure [Unknown]
  - Hypotension [Unknown]
  - International normalised ratio increased [Unknown]
  - Troponin increased [Unknown]
  - Shock [Unknown]
  - Unresponsive to stimuli [Unknown]
  - Alanine aminotransferase increased [Unknown]
  - Aspartate aminotransferase increased [Unknown]
  - Acidosis [Unknown]
  - Vomiting [Unknown]
  - Maternal exposure during pregnancy [Recovered/Resolved]

NARRATIVE: CASE EVENT DATE: 20230101
